FAERS Safety Report 6391522-5 (Version None)
Quarter: 2009Q4

REPORT INFORMATION
  Report Type: 
  Country: None (occurrence: None)
  Receive Date: 20091007
  Receipt Date: 20090924
  Transmission Date: 20100525
  Serious: Yes (Other)
  Sender: FDA-Public Use
  Company Number: GB-BAYER-200933748GPV

PATIENT
  Sex: Female

DRUGS (2)
  1. CANESTEN DUO [Suspect]
     Indication: DRUG USE FOR UNKNOWN INDICATION
     Route: 067
     Dates: start: 20090917
  2. CANESTEN DUO [Suspect]
     Route: 067
     Dates: start: 20090917

REACTIONS (1)
  - VAGINAL EXFOLIATION [None]
